FAERS Safety Report 8906695 (Version 2)
Quarter: 2012Q4

REPORT INFORMATION
  Report Type: Report from Study
  Country: GB (occurrence: GB)
  Receive Date: 20121114
  Receipt Date: 20121228
  Transmission Date: 20130627
  Serious: Yes (Hospitalization)
  Sender: FDA-Public Use
  Company Number: GB-BRISTOL-MYERS SQUIBB COMPANY-17054776

PATIENT
  Age: 64 Year
  Sex: Male
  Weight: 86.5 kg

DRUGS (12)
  1. IPILIMUMAB [Suspect]
     Indication: SMALL CELL LUNG CANCER STAGE UNSPECIFIED
     Dosage: Recent dose:28Sep12
     Dates: start: 20120907
  2. CARBOPLATIN [Suspect]
     Indication: SMALL CELL LUNG CANCER STAGE UNSPECIFIED
     Dosage: Recent dose:28Sep12, 600mg recent dose on 26oct12,
     Dates: start: 20120725
  3. ETOPOSIDE [Suspect]
     Indication: SMALL CELL LUNG CANCER STAGE UNSPECIFIED
     Dosage: Recent dose:28Sep12,  most recent dose on 26oct12
     Dates: start: 20120725
  4. AMITRIPTYLINE [Concomitant]
     Route: 048
  5. BISOPROLOL [Concomitant]
     Route: 048
     Dates: start: 20090928
  6. CANDESARTAN [Concomitant]
     Route: 048
     Dates: start: 20080804
  7. OMEPRAZOLE [Concomitant]
     Route: 048
     Dates: start: 20080623
  8. QUININE SULFATE [Concomitant]
     Route: 048
     Dates: start: 20090108
  9. ZOMORPH [Concomitant]
     Route: 048
  10. TRANEXAMIC ACID [Concomitant]
     Route: 048
     Dates: end: 20121015
  11. MORPHINE SULFATE [Concomitant]
     Dosage: 80mg on 19jul12, 10mg on 30jul12
     Route: 048
  12. SENNA [Concomitant]

REACTIONS (3)
  - Diarrhoea [Recovered/Resolved]
  - Anaemia [Recovered/Resolved]
  - Hypomagnesaemia [Recovered/Resolved]
